FAERS Safety Report 4626831-0 (Version None)
Quarter: 2005Q1

REPORT INFORMATION
  Report Type: 
  Country: None (occurrence: None)
  Receive Date: 20050330
  Receipt Date: 20050314
  Transmission Date: 20050727
  Serious: Yes (Hospitalization)
  Sender: FDA-Public Use
  Company Number: B0373535A

PATIENT
  Age: 56 Year
  Sex: Female

DRUGS (1)
  1. LITHIUM SALT (FORMULATION UNKNOWN)  (GENERIC)  (LITHIUM SALT) [Suspect]

REACTIONS (18)
  - ACTIVITIES OF DAILY LIVING IMPAIRED [None]
  - AGITATION [None]
  - BLOOD CALCIUM INCREASED [None]
  - BLOOD PARATHYROID HORMONE INCREASED [None]
  - CONFUSIONAL STATE [None]
  - DELIRIUM [None]
  - DIFFICULTY IN WALKING [None]
  - DRUG TOXICITY [None]
  - FALL [None]
  - HYPERTHYROIDISM [None]
  - POLYDIPSIA [None]
  - POLYURIA [None]
  - PSORIASIS [None]
  - RESPIRATORY FAILURE [None]
  - RESTLESSNESS [None]
  - SKIN TURGOR DECREASED [None]
  - SPEECH DISORDER [None]
  - SPUTUM RETENTION [None]
